FAERS Safety Report 17290102 (Version 1)
Quarter: 2020Q1

REPORT INFORMATION
  Report Type: Spontaneous
  Country: BE (occurrence: BE)
  Receive Date: 20200120
  Receipt Date: 20200120
  Transmission Date: 20200409
  Serious: Yes (Hospitalization, Other)
  Sender: FDA-Public Use
  Company Number: BE-ABBVIE-20K-013-3240093-00

PATIENT

DRUGS (1)
  1. CHIROCAINE [Suspect]
     Active Substance: LEVOBUPIVACAINE HYDROCHLORIDE
     Indication: LOCAL ANAESTHESIA
     Route: 050

REACTIONS (2)
  - Neurotoxicity [Unknown]
  - Arthropathy [Unknown]
